FAERS Safety Report 19667975 (Version 7)
Quarter: 2022Q1

REPORT INFORMATION
  Report Type: Spontaneous
  Country: JP (occurrence: JP)
  Receive Date: 20210806
  Receipt Date: 20220316
  Transmission Date: 20220423
  Serious: Yes (Hospitalization, Other)
  Sender: FDA-Public Use
  Company Number: JP-ONO-2021JP018391

PATIENT
  Age: 71 Year
  Sex: Male

DRUGS (6)
  1. BRAFTOVI [Suspect]
     Active Substance: ENCORAFENIB
     Indication: Colon cancer
     Dosage: 300 MG
     Route: 048
     Dates: start: 20201209, end: 20210724
  2. HYDROMORPHONE HYDROCHLORIDE [Concomitant]
     Active Substance: HYDROMORPHONE HYDROCHLORIDE
     Dosage: UNK
     Route: 065
  3. LOXOPROFEN SODIUM [Concomitant]
     Active Substance: LOXOPROFEN SODIUM
     Dosage: UNK
     Route: 065
  4. NEXIUM [Concomitant]
     Active Substance: ESOMEPRAZOLE MAGNESIUM
     Dosage: UNK
     Route: 065
  5. ERBITUX [Concomitant]
     Active Substance: CETUXIMAB
     Indication: Colon cancer
     Dosage: UNK
     Route: 065
     Dates: start: 20201209, end: 202107
  6. ERBITUX [Concomitant]
     Active Substance: CETUXIMAB
     Indication: Colon cancer

REACTIONS (1)
  - Rhabdomyolysis [Not Recovered/Not Resolved]

NARRATIVE: CASE EVENT DATE: 20210724
